FAERS Safety Report 6207875-4 (Version None)
Quarter: 2009Q2

REPORT INFORMATION
  Report Type: 
  Country: None (occurrence: None)
  Receive Date: 20090527
  Receipt Date: 20090514
  Transmission Date: 20091009
  Serious: Yes (Other)
  Sender: FDA-Public Use
  Company Number: 09-000728

PATIENT
  Age: 88 Year
  Sex: Male
  Weight: 70.3 kg

DRUGS (5)
  1. DORYX [Suspect]
     Indication: ORAL INFECTION
     Dosage: 150 MG, QD, ORAL
     Route: 048
     Dates: start: 20090504
  2. PROSCAR [Concomitant]
  3. LUPRON [Concomitant]
  4. ZOLADEX /00732101/ (GOSERELIN) [Concomitant]
  5. ACTONEL [Concomitant]

REACTIONS (1)
  - CHEST PAIN [None]
